FAERS Safety Report 9846177 (Version 1)
Quarter: 2014Q1

REPORT INFORMATION
  Report Type: Spontaneous
  Country: GB (occurrence: GB)
  Receive Date: 20140127
  Receipt Date: 20140127
  Transmission Date: 20141002
  Serious: Yes (Other)
  Sender: FDA-Public Use
  Company Number: GB-PFIZER INC-2014019590

PATIENT
  Age: 61 Year
  Sex: Female
  Weight: 88.9 kg

DRUGS (7)
  1. DOCETAXEL [Suspect]
     Indication: BREAST CANCER FEMALE
     Dosage: NO DETAILS, CHEMOTHERAPY GIVEN EVERY 3 WEEKS
     Route: 051
     Dates: start: 20101210, end: 20110428
  2. EPIRUBICIN HCL [Suspect]
     Indication: BREAST CANCER FEMALE
     Dosage: NO DETAILS, CHEMOTHERAPY GIVEN EVERY 3 WEEKS
     Route: 051
     Dates: start: 20101210, end: 20110428
  3. CYCLOPHOSPHAMIDE [Suspect]
     Indication: BREAST CANCER FEMALE
     Dosage: NO DETAILS, CHEMOTHERAPY GIVEN EVERY 3 WEEKS
     Route: 051
     Dates: start: 20101210, end: 20110428
  4. HERCEPTIN [Suspect]
     Indication: BREAST CANCER FEMALE
     Dosage: NO DETAILS, CHEMOTHERAPY GIVEN EVERY 3 WEEKS
     Route: 051
     Dates: start: 20101210, end: 20110428
  5. PREDNISOLONE [Suspect]
     Indication: BREAST CANCER FEMALE
     Dosage: NO DETAILS, CHEMOTHERAPY GIVEN EVERY 3 WEEKS
     Route: 051
     Dates: start: 20101210, end: 20110428
  6. ARIMIDEX ^ASTRAZENECA^ [Concomitant]
     Dosage: UNK
  7. SERETIDE [Concomitant]
     Dosage: UNK
     Route: 055

REACTIONS (7)
  - Infusion site nerve damage [Not Recovered/Not Resolved]
  - Headache [Not Recovered/Not Resolved]
  - Photopsia [Not Recovered/Not Resolved]
  - Blindness [Not Recovered/Not Resolved]
  - Hypoacusis [Not Recovered/Not Resolved]
  - Arthralgia [Unknown]
  - Pain [Unknown]
